FAERS Safety Report 13490374 (Version 2)
Quarter: 2017Q2

REPORT INFORMATION
  Report Type: Spontaneous
  Country: HU (occurrence: HU)
  Receive Date: 20170427
  Receipt Date: 20170502
  Transmission Date: 20170830
  Serious: Yes (Hospitalization, Other)
  Sender: FDA-Public Use
  Company Number: HU-IPSEN BIOPHARMACEUTICALS, INC.-2017-03261

PATIENT
  Age: 70 Year
  Sex: Female

DRUGS (6)
  1. SOMATULINE [Suspect]
     Active Substance: LANREOTIDE ACETATE
     Indication: PANCREATIC NEUROENDOCRINE TUMOUR
     Dosage: 120 MG
     Route: 065
     Dates: start: 201602, end: 201702
  2. MAGNE B6 [Concomitant]
     Active Substance: MAGNESIUM\PYRIDOXINE
  3. NEBILET [Concomitant]
     Active Substance: NEBIVOLOL
     Indication: HYPERTENSION
     Dosage: 1/2 - 1 TABLET OF 5MG NEBIVOLOL DAILY
     Dates: end: 201702
  4. SOMATULINE [Suspect]
     Active Substance: LANREOTIDE ACETATE
     Dosage: 90 MG
     Route: 065
     Dates: start: 20170308
  5. PRITOR [Concomitant]
     Active Substance: TELMISARTAN
     Indication: HYPERTENSION
     Dosage: 1/3 TABLET OF 80MG TELMISARTAN DAILY
     Dates: end: 201702
  6. VITAMIN C [Concomitant]
     Active Substance: ASCORBIC ACID

REACTIONS (21)
  - Blood pressure diastolic decreased [Recovered/Resolved]
  - Hyperkeratosis [Not Recovered/Not Resolved]
  - Flatulence [Not Recovered/Not Resolved]
  - Insomnia [Not Recovered/Not Resolved]
  - Alopecia [Recovered/Resolved]
  - Rash pruritic [Not Recovered/Not Resolved]
  - Faeces pale [Not Recovered/Not Resolved]
  - Heart rate decreased [Not Recovered/Not Resolved]
  - Arthralgia [Not Recovered/Not Resolved]
  - Pain in extremity [Not Recovered/Not Resolved]
  - Headache [Recovered/Resolved]
  - Blood glucose fluctuation [Not Recovered/Not Resolved]
  - Blood glucose increased [Not Recovered/Not Resolved]
  - Dyschezia [Recovering/Resolving]
  - Blood pressure increased [Recovered/Resolved]
  - Paraesthesia [Recovered/Resolved]
  - Chest discomfort [Recovered/Resolved]
  - Diarrhoea [Not Recovered/Not Resolved]
  - Defaecation urgency [Not Recovered/Not Resolved]
  - Appetite disorder [Not Recovered/Not Resolved]
  - Urine abnormality [Not Recovered/Not Resolved]

NARRATIVE: CASE EVENT DATE: 2016
